FAERS Safety Report 17349592 (Version 1)
Quarter: 2020Q1

REPORT INFORMATION
  Report Type: Other
  Country: GB (occurrence: GB)
  Receive Date: 20200130
  Receipt Date: 20200130
  Transmission Date: 20200409
  Serious: No
  Sender: FDA-Public Use
  Company Number: GB-LUPIN PHARMACEUTICALS INC.-2019-08311

PATIENT
  Age: 25 Year
  Sex: Female
  Weight: 104 kg

DRUGS (6)
  1. INSTILLAGEL [Concomitant]
     Active Substance: CHLORHEXIDINE GLUCONATE\LIDOCAINE HYDROCHLORIDE
     Indication: ILL-DEFINED DISORDER
     Dosage: UNK, AS DIRECTED
     Route: 065
     Dates: start: 20190820, end: 20190821
  2. ZOPICLONE [Concomitant]
     Active Substance: ZOPICLONE
     Indication: ILL-DEFINED DISORDER
     Dosage: 1 DOSAGE FORM, QOD, TAKE ONE TABLET ON ALTERNATE NIGHTS
     Route: 065
     Dates: start: 20191009, end: 20191106
  3. SERTRALINE [Suspect]
     Active Substance: SERTRALINE HYDROCHLORIDE
     Indication: PRODUCT USED FOR UNKNOWN INDICATION
     Dosage: 1 DOSAGE FORM, QD
     Route: 065
     Dates: start: 20191009
  4. PROPRANOLOL [Concomitant]
     Active Substance: PROPRANOLOL HYDROCHLORIDE
     Indication: ILL-DEFINED DISORDER
     Dosage: UNK UNK, PRN, TAKE ONE 3 TIMES/DAY WHEN REQUIRED FOR PANIC AT...
     Route: 065
     Dates: start: 20191009, end: 20191106
  5. KYLEENA [Concomitant]
     Active Substance: LEVONORGESTREL
     Indication: ILL-DEFINED DISORDER
     Dosage: UNK, AS DIRECTED
     Route: 065
     Dates: start: 20190820, end: 20190821
  6. FLUOXETINE [Concomitant]
     Active Substance: FLUOXETINE HYDROCHLORIDE
     Indication: ILL-DEFINED DISORDER
     Dosage: 1 DOSAGE FORM, QD
     Route: 065
     Dates: start: 20181029

REACTIONS (1)
  - Nausea [Recovered/Resolved]
